FAERS Safety Report 23430280 (Version 1)
Quarter: 2024Q1

REPORT INFORMATION
  Report Type: Spontaneous
  Country: US (occurrence: US)
  Receive Date: 20240123
  Receipt Date: 20240123
  Transmission Date: 20240409
  Serious: No
  Sender: FDA-Public Use
  Company Number: US-STRIDES ARCOLAB LIMITED-2023SP012519

PATIENT
  Age: 72 Year
  Sex: Male

DRUGS (7)
  1. CALCITRIOL [Suspect]
     Active Substance: CALCITRIOL
     Indication: Renal disorder
     Dosage: UNK
     Route: 065
  2. CALCITRIOL [Suspect]
     Active Substance: CALCITRIOL
     Indication: Hypophosphataemia
  3. IRON [Concomitant]
     Active Substance: IRON
     Indication: Iron deficiency anaemia
     Dosage: UNK
     Route: 048
  4. IRON SUCROSE [Concomitant]
     Active Substance: IRON SUCROSE
     Indication: Iron deficiency anaemia
     Dosage: UNK
     Route: 042
  5. PHOSPHORUS [Concomitant]
     Active Substance: PHOSPHORUS
     Indication: Renal disorder
     Dosage: UNK
     Route: 065
  6. PHOSPHORUS [Concomitant]
     Active Substance: PHOSPHORUS
     Indication: Hypophosphataemia
  7. FERUMOXYTOL [Concomitant]
     Active Substance: FERUMOXYTOL
     Indication: Iron deficiency anaemia
     Dosage: 3 DOSAGE FORM (THREE MONTHS  APART), INTRAVENOUS INFUSION
     Route: 042

REACTIONS (1)
  - Off label use [Unknown]
